FAERS Safety Report 4660211-7 (Version None)
Quarter: 2005Q2

REPORT INFORMATION
  Report Type: 
  Country: None (occurrence: None)
  Receive Date: 20050512
  Receipt Date: 20050429
  Transmission Date: 20051028
  Serious: Yes (Other)
  Sender: FDA-Public Use
  Company Number: AT-JNJFOC-20050404786

PATIENT
  Sex: Female
  Weight: 54 kg

DRUGS (6)
  1. REMICADE [Suspect]
     Route: 042
  2. REMICADE [Suspect]
     Indication: CROHN'S DISEASE
     Route: 042
  3. IMUREK [Concomitant]
     Indication: CROHN'S DISEASE
     Route: 049
  4. PREDNISONE [Concomitant]
     Indication: DRUG DEPENDENCE
     Route: 049
  5. CAL-D-VITA [Concomitant]
  6. CAL-D-VITA [Concomitant]
     Indication: PROPHYLAXIS

REACTIONS (3)
  - ABORTION SPONTANEOUS [None]
  - DRUG EXPOSURE DURING PREGNANCY [None]
  - PREGNANCY [None]
